FAERS Safety Report 6207965-6 (Version None)
Quarter: 2009Q2

REPORT INFORMATION
  Report Type: 
  Country: None (occurrence: None)
  Receive Date: 20090529
  Receipt Date: 20090122
  Transmission Date: 20091009
  Serious: No
  Sender: FDA-Public Use
  Company Number: A0761951A

PATIENT
  Sex: Male

DRUGS (1)
  1. VENTOLIN [Suspect]
     Indication: RESPIRATORY TRACT IRRITATION
     Dosage: 1PUFF SEE DOSAGE TEXT
     Route: 065

REACTIONS (7)
  - ADVERSE DRUG REACTION [None]
  - ANXIETY [None]
  - CONDITION AGGRAVATED [None]
  - DRY MOUTH [None]
  - DYSPHONIA [None]
  - RESPIRATORY TRACT IRRITATION [None]
  - THROAT IRRITATION [None]
